FAERS Safety Report 12488675 (Version 2)
Quarter: 2016Q3

REPORT INFORMATION
  Report Type: Spontaneous
  Country: US (occurrence: US)
  Receive Date: 20160622
  Receipt Date: 20160711
  Transmission Date: 20161109
  Serious: Yes (Other)
  Sender: FDA-Public Use
  Company Number: US-ACTAVIS-2016-12959

PATIENT
  Age: 63 Year
  Sex: Female

DRUGS (1)
  1. DOXORUBICIN HYDROCHLORIDE (ACTAVIS INC) [Suspect]
     Active Substance: DOXORUBICIN HYDROCHLORIDE
     Indication: EWING^S SARCOMA
     Dosage: UNK UNK, CYCLICAL, 1 CYCLE ADMINISTERED
     Route: 065

REACTIONS (1)
  - Toxicity to various agents [Unknown]
